FAERS Safety Report 4337450-8 (Version None)
Quarter: 2004Q2

REPORT INFORMATION
  Report Type: 
  Country: None (occurrence: None)
  Receive Date: 20040408
  Receipt Date: 20040401
  Transmission Date: 20050107
  Serious: Yes (Other)
  Sender: FDA-Public Use
  Company Number: IT-JNJFOC-20040400674

PATIENT
  Age: 63 Year
  Sex: Female

DRUGS (3)
  1. REMICADE [Suspect]
     Indication: CROHN'S DISEASE
     Dosage: 375 MG, 1 IN 1 CYCLICAL, INTRAVENOUS
     Route: 042
     Dates: start: 20011016, end: 20011130
  2. CORTICOSTEROIDS (CORTICOSTEROIDS) UNSPECIFIED [Concomitant]
  3. ANTIBIOTICS (ANTIBIOTICS) UNSPECIFIED [Concomitant]

REACTIONS (4)
  - DYSPNOEA [None]
  - EXANTHEM [None]
  - FACE OEDEMA [None]
  - PYREXIA [None]
